FAERS Safety Report 20886338 (Version 2)
Quarter: 2022Q3

REPORT INFORMATION
  Report Type: Spontaneous
  Country: NL (occurrence: NL)
  Receive Date: 20220527
  Receipt Date: 20220808
  Transmission Date: 20221026
  Serious: Yes (Death, Other)
  Sender: FDA-Public Use
  Company Number: NL-PFIZER INC-202200766026

PATIENT
  Sex: Female
  Weight: 62 kg

DRUGS (4)
  1. PALBOCICLIB [Suspect]
     Active Substance: PALBOCICLIB
     Indication: Breast cancer metastatic
     Dosage: 125 MG, CYCLIC (21/7 DAYS)
     Route: 048
     Dates: start: 20191004, end: 20220513
  2. OMEPRAZOLE [Concomitant]
     Active Substance: OMEPRAZOLE
     Dosage: UNK
  3. OXYCODONE [Concomitant]
     Active Substance: OXYCODONE
     Dosage: UNK
  4. LEVOTHYROXINE SODIUM [Concomitant]
     Active Substance: LEVOTHYROXINE SODIUM
     Dosage: UNK

REACTIONS (4)
  - Hepatic failure [Fatal]
  - Ascites [Fatal]
  - Pseudocirrhosis [Unknown]
  - Disease progression [Unknown]

NARRATIVE: CASE EVENT DATE: 20220502
